FAERS Safety Report 11272487 (Version 4)
Quarter: 2016Q1

REPORT INFORMATION
  Report Type: Report from Study
  Country: US (occurrence: US)
  Receive Date: 20150715
  Receipt Date: 20160331
  Transmission Date: 20160525
  Serious: No
  Sender: FDA-Public Use
  Company Number: PHHY2014US112596

PATIENT
  Age: 52 Year
  Sex: Male

DRUGS (2)
  1. GILENYA [Suspect]
     Active Substance: FINGOLIMOD HYDROCHLORIDE
     Indication: MULTIPLE SCLEROSIS
     Dosage: UNK, QD
     Route: 048
  2. FLUOXETINE [Concomitant]
     Active Substance: FLUOXETINE HYDROCHLORIDE
     Indication: DEPRESSION
     Dosage: UNK
     Route: 065
     Dates: start: 20160202

REACTIONS (11)
  - Diarrhoea [Recovered/Resolved]
  - Upper respiratory tract infection [Recovered/Resolved]
  - Hypoaesthesia [Recovered/Resolved]
  - Abdominal distension [Recovered/Resolved]
  - Fatigue [Recovered/Resolved]
  - Burning sensation [Recovered/Resolved]
  - Influenza like illness [Recovered/Resolved]
  - Gastrointestinal pain [Recovered/Resolved]
  - Upper respiratory tract infection [Unknown]
  - Epigastric discomfort [Recovered/Resolved]
  - Flushing [Recovered/Resolved]

NARRATIVE: CASE EVENT DATE: 20140708
